FAERS Safety Report 19283538 (Version 2)
Quarter: 2021Q2

REPORT INFORMATION
  Report Type: Spontaneous
  Country: US (occurrence: US)
  Receive Date: 20210520
  Receipt Date: 20210616
  Transmission Date: 20210717
  Serious: No
  Sender: FDA-Public Use
  Company Number: US-ASTRAZENECA-2021A344871

PATIENT
  Sex: Female

DRUGS (2)
  1. BUDESONIDE AND FORMOTEROL AEROSOL [Suspect]
     Active Substance: BUDESONIDE\FORMOTEROL FUMARATE DIHYDRATE
     Dosage: 160/4.5 UG, 1 PUFF, TWICE A DAY
     Route: 055
     Dates: start: 20210327
  2. SYMBICORT [Suspect]
     Active Substance: BUDESONIDE\FORMOTEROL FUMARATE DIHYDRATE
     Dosage: 160/4.5 UG, TAKING 1 PUFF, TWICE DAY
     Route: 055
     Dates: end: 20210326

REACTIONS (7)
  - Device use error [Unknown]
  - Therapeutic product effect decreased [Unknown]
  - Product taste abnormal [Unknown]
  - Product packaging quantity issue [Unknown]
  - Device malfunction [Unknown]
  - Incoherent [Unknown]
  - Product substitution issue [Unknown]
